FAERS Safety Report 5081298-6 (Version None)
Quarter: 2006Q3

REPORT INFORMATION
  Report Type: 
  Country: None (occurrence: None)
  Receive Date: 20060816
  Receipt Date: 20060810
  Transmission Date: 20061208
  Serious: Yes (Other)
  Sender: FDA-Public Use
  Company Number: BEWYE658310AUG06

PATIENT
  Age: 49 Year
  Sex: Male
  Weight: 129 kg

DRUGS (6)
  1. ENBREL [Suspect]
     Indication: PSORIATIC ARTHROPATHY
     Dosage: NOT PROVIDED
     Route: 058
     Dates: start: 20050303
  2. OMEPRAZOLE [Concomitant]
     Indication: GASTRIC ULCER
     Route: 048
     Dates: start: 20000101
  3. CORSODYL [Concomitant]
     Dosage: NOT PROVIDED
     Dates: start: 20050101
  4. SYSCOR [Concomitant]
     Indication: CARDIAC DISORDER
     Route: 048
     Dates: start: 20020101
  5. EFFEXOR [Concomitant]
     Indication: MAJOR DEPRESSION
     Route: 048
     Dates: start: 20010101
  6. FELDENE [Concomitant]
     Indication: HERNIA
     Route: 048
     Dates: start: 20050101

REACTIONS (2)
  - IMMOBILE [None]
  - MUSCLE SPASMS [None]
